FAERS Safety Report 9471920 (Version 3)
Quarter: 2013Q4

REPORT INFORMATION
  Report Type: Report from Study
  Country: FR (occurrence: FR)
  Receive Date: 20130823
  Receipt Date: 20131004
  Transmission Date: 20140711
  Serious: Yes (Life-Threatening)
  Sender: FDA-Public Use
  Company Number: FR-ROCHE-1264430

PATIENT
  Age: 75 Year
  Sex: Female

DRUGS (4)
  1. PERTUZUMAB [Suspect]
     Indication: BREAST CANCER
     Dosage: LOADING DOSE. LAST DOSE PRIOR TO SAE: 05/AUG/2013.
     Route: 042
     Dates: start: 20130805, end: 20130805
  2. TRASTUZUMAB [Suspect]
     Indication: BREAST CANCER
     Dosage: LOADING DOSE. LAST DOSE PRIOR TO SAE: 06/AUG/2013.
     Route: 042
     Dates: start: 20130806, end: 20130806
  3. DOCETAXEL [Suspect]
     Indication: BREAST CANCER
     Dosage: LAST DOSE PRIOR TO FEBRILE APLASIA: 06/AUG/2013.
     Route: 065
     Dates: start: 20130806
  4. PARACETAMOL [Concomitant]
     Indication: PAIN PROPHYLAXIS
     Route: 065
     Dates: start: 20130731

REACTIONS (1)
  - Febrile bone marrow aplasia [Recovered/Resolved]
